FAERS Safety Report 20778813 (Version 2)
Quarter: 2022Q2

REPORT INFORMATION
  Report Type: Spontaneous
  Country: BR (occurrence: BR)
  Receive Date: 20220503
  Receipt Date: 20220509
  Transmission Date: 20220721
  Serious: Yes (Life-Threatening, Other)
  Sender: FDA-Public Use
  Company Number: BR-PFIZER INC-202200634720

PATIENT
  Sex: Male

DRUGS (4)
  1. LORAZEPAM [Suspect]
     Active Substance: LORAZEPAM
     Dosage: 4 MG, 1X/DAY (AT NIGHT)
     Dates: start: 1997
  2. APRAZ [ALPRAZOLAM] [Concomitant]
  3. PEG 4000 DIOLEATE [Concomitant]
     Indication: Neurogenic bowel
     Dosage: UNK
     Dates: start: 202011
  4. AVONEX [Concomitant]
     Active Substance: INTERFERON BETA-1A
     Indication: Neurogenic bowel

REACTIONS (3)
  - Withdrawal syndrome [Unknown]
  - Suicidal ideation [Unknown]
  - Mental disorder [Unknown]
